FAERS Safety Report 17005861 (Version 2)
Quarter: 2022Q1

REPORT INFORMATION
  Report Type: Report from Study
  Country: US (occurrence: US)
  Receive Date: 20191107
  Receipt Date: 20220114
  Transmission Date: 20220424
  Serious: Yes (Death, Other)
  Sender: FDA-Public Use
  Company Number: US-PFIZER INC-2019132680

PATIENT
  Age: 57 Year
  Sex: Male

DRUGS (2)
  1. XELJANZ [Suspect]
     Active Substance: TOFACITINIB CITRATE
     Indication: Colitis ulcerative
     Dosage: 10 MG, 2X/DAY
     Route: 048
     Dates: start: 20190302
  2. XELJANZ [Suspect]
     Active Substance: TOFACITINIB CITRATE
     Dosage: 10 MG, 2X/DAY
     Route: 048
     Dates: start: 201907

REACTIONS (10)
  - Death [Fatal]
  - Anaemia [Unknown]
  - Colitis ulcerative [Unknown]
  - Condition aggravated [Unknown]
  - Therapeutic product effect incomplete [Unknown]
  - Sleep disorder [Not Recovered/Not Resolved]
  - Rash [Unknown]
  - Acne [Unknown]
  - Increased tendency to bruise [Unknown]
  - Cough [Unknown]

NARRATIVE: CASE EVENT DATE: 20190101
